FAERS Safety Report 21205080 (Version 2)
Quarter: 2022Q3

REPORT INFORMATION
  Report Type: Report from Study
  Country: GB (occurrence: GB)
  Receive Date: 20220812
  Receipt Date: 20220815
  Transmission Date: 20221027
  Serious: Yes (Other)
  Sender: FDA-Public Use
  Company Number: GB-NOVARTISPH-NVSC2021GB258725

PATIENT
  Sex: Male

DRUGS (1)
  1. MAYZENT [Suspect]
     Active Substance: SIPONIMOD
     Indication: Secondary progressive multiple sclerosis
     Dosage: 2 MG, QD
     Route: 048
     Dates: start: 20210809

REACTIONS (8)
  - Loss of consciousness [Not Recovered/Not Resolved]
  - Bradycardia [Not Recovered/Not Resolved]
  - Urinary tract infection [Recovered/Resolved]
  - Erythema [Unknown]
  - Dry skin [Unknown]
  - COVID-19 [Recovered/Resolved]
  - Dizziness postural [Not Recovered/Not Resolved]
  - Hypotension [Not Recovered/Not Resolved]

NARRATIVE: CASE EVENT DATE: 20211103
